FAERS Safety Report 8851248 (Version 1)
Quarter: 2012Q4

REPORT INFORMATION
  Report Type: 
  Country: US (occurrence: US)
  Receive Date: 20121019
  Receipt Date: 20121019
  Transmission Date: 20130627
  Serious: No
  Sender: FDA-Public Use
  Company Number: US-PFIZER INC-2012256142

PATIENT
  Age: 47 Year
  Sex: Male
  Weight: 66 kg

DRUGS (3)
  1. GENOTROPIN MQ [Suspect]
     Dosage: 0.6 mg, daily
     Route: 058
  2. VITAMIN D3 [Concomitant]
     Dosage: 1000 unit
  3. CALCIUM [Concomitant]
     Dosage: 500,UNK

REACTIONS (6)
  - Musculoskeletal discomfort [Recovering/Resolving]
  - Arthralgia [Recovering/Resolving]
  - Feeling abnormal [Recovering/Resolving]
  - Headache [Recovering/Resolving]
  - Nausea [Recovering/Resolving]
  - Back disorder [Recovering/Resolving]
